FAERS Safety Report 5279809-0 (Version None)
Quarter: 2007Q1

REPORT INFORMATION
  Report Type: 
  Country: None (occurrence: None)
  Receive Date: 20070327
  Receipt Date: 20070327
  Transmission Date: 20070707
  Serious: Yes (Hospitalization)
  Sender: FDA-Public Use
  Company Number: None

PATIENT
  Sex: Male
  Weight: 104 kg

DRUGS (5)
  1. HEPARIN [Suspect]
     Indication: ANTICOAGULANT THERAPY
     Dosage: 1000 UNITS/HR IV
     Route: 042
     Dates: start: 20060815, end: 20060818
  2. HEPARIN [Suspect]
     Indication: ATRIAL FIBRILLATION
     Dosage: 1000 UNITS/HR IV
     Route: 042
     Dates: start: 20060815, end: 20060818
  3. FAMOTIDINE [Suspect]
     Indication: PROPHYLAXIS
     Dosage: 20 MG IV Q12H
     Route: 042
     Dates: start: 20060818, end: 20060821
  4. FAMOTIDINE [Suspect]
     Indication: STRESS ULCER
     Dosage: 20 MG IV Q12H
     Route: 042
     Dates: start: 20060818, end: 20060821
  5. ZOSYN [Concomitant]

REACTIONS (4)
  - ATRIAL FIBRILLATION [None]
  - CORONARY ARTERY BYPASS [None]
  - PROCEDURAL COMPLICATION [None]
  - SKIN DISCOLOURATION [None]
